FAERS Safety Report 15155022 (Version 1)
Quarter: 2018Q3

REPORT INFORMATION
  Report Type: Spontaneous
  Country: US (occurrence: US)
  Receive Date: 20180717
  Receipt Date: 20180717
  Transmission Date: 20181010
  Serious: Yes (Other)
  Sender: FDA-Public Use
  Company Number: US-AMGEN-USASP2018094376

PATIENT
  Age: 73 Year
  Sex: Female

DRUGS (1)
  1. PROLIA [Suspect]
     Active Substance: DENOSUMAB
     Indication: OSTEOPOROSIS POSTMENOPAUSAL
     Dosage: UNK
     Route: 065

REACTIONS (11)
  - Rash generalised [Not Recovered/Not Resolved]
  - Skin infection [Unknown]
  - Back disorder [Unknown]
  - Herpes zoster [Unknown]
  - Eosinophil count increased [Unknown]
  - Dermatitis contact [Unknown]
  - Urticaria [Unknown]
  - Arthralgia [Unknown]
  - Groin pain [Unknown]
  - Pruritus [Unknown]
  - Pain in extremity [Unknown]
